FAERS Safety Report 20057119 (Version 1)
Quarter: 2021Q4

REPORT INFORMATION
  Report Type: Spontaneous
  Country: US (occurrence: US)
  Receive Date: 20211111
  Receipt Date: 20211111
  Transmission Date: 20220303
  Serious: Yes (Other)
  Sender: FDA-Public Use
  Company Number: US-drreddys-SPO/USA/21/0143638

PATIENT
  Age: 23 Year
  Sex: Female

DRUGS (1)
  1. ACCUTANE [Suspect]
     Active Substance: ISOTRETINOIN
     Indication: Product used for unknown indication
     Dosage: 18 MAY 2021 4:36:41 PM, 22 JUNE 2021  12:15:17 PM, 27 JULY 2021  9:42:48 AM AND 31 AUGUST 2021 11:29

REACTIONS (2)
  - Mood altered [Unknown]
  - Dry skin [Unknown]
